FAERS Safety Report 24165847 (Version 2)
Quarter: 2025Q1

REPORT INFORMATION
  Report Type: Report from Study
  Country: IT (occurrence: IT)
  Receive Date: 20240802
  Receipt Date: 20250321
  Transmission Date: 20250409
  Serious: Yes (Other)
  Sender: AUROBINDO
  Company Number: IT-UCBSA-2024036433

PATIENT
  Age: 88 Year
  Sex: Male

DRUGS (2)
  1. APIXABAN [Interacting]
     Active Substance: APIXABAN
     Indication: Anticoagulant therapy
     Route: 048
  2. LEVETIRACETAM [Interacting]
     Active Substance: LEVETIRACETAM
     Indication: Epilepsy
     Route: 065

REACTIONS (2)
  - Epilepsy [Unknown]
  - Drug interaction [Unknown]
